FAERS Safety Report 14793979 (Version 1)
Quarter: 2018Q2

REPORT INFORMATION
  Report Type: Spontaneous
  Country: GB (occurrence: GB)
  Receive Date: 20180423
  Receipt Date: 20180423
  Transmission Date: 20180711
  Serious: Yes (Hospitalization, Other)
  Sender: FDA-Public Use
  Company Number: GB-MYLANLABS-2018M1025453

PATIENT
  Age: 71 Year
  Sex: Male

DRUGS (3)
  1. TACROLIMUS MYLAN [Suspect]
     Active Substance: TACROLIMUS
     Dosage: UNK UNK, UNKNOWN FREQ.
     Route: 048
  2. PREDNISOLONE. [Concomitant]
     Active Substance: PREDNISOLONE
     Indication: KIDNEY TRANSPLANT REJECTION
     Dosage: 5 (UNIT NOT PROVIDED), ONCE DAILY
     Route: 065
     Dates: start: 20141031
  3. TACROLIMUS MYLAN [Suspect]
     Active Substance: TACROLIMUS
     Indication: PRODUCT USED FOR UNKNOWN INDICATION
     Dosage: 2 (UNKNOWN UNIT), ONCE DAILY
     Route: 065
     Dates: start: 20151230, end: 20170714

REACTIONS (1)
  - Tonsil cancer [Recovered/Resolved with Sequelae]

NARRATIVE: CASE EVENT DATE: 20170714
